FAERS Safety Report 20592073 (Version 1)
Quarter: 2022Q1

REPORT INFORMATION
  Report Type: Spontaneous
  Country: US (occurrence: US)
  Receive Date: 20220314
  Receipt Date: 20220314
  Transmission Date: 20220423
  Serious: No
  Sender: FDA-Public Use
  Company Number: US-GILEAD-2022-0572338

PATIENT
  Sex: Male

DRUGS (4)
  1. EPCLUSA [Suspect]
     Active Substance: SOFOSBUVIR\VELPATASVIR
     Indication: Chronic hepatitis C
     Dosage: 1 DOSAGE FORM, QD
     Route: 048
  2. DAILY-VITE [Concomitant]
  3. HERBALS\PLANTAGO OVATA LEAF [Concomitant]
     Active Substance: HERBALS\PLANTAGO OVATA LEAF
  4. HYDROCORTISONE [Concomitant]
     Active Substance: HYDROCORTISONE

REACTIONS (1)
  - Fatigue [Unknown]
